FAERS Safety Report 23958646 (Version 3)
Quarter: 2024Q3

REPORT INFORMATION
  Report Type: Report from Study
  Country: CO (occurrence: CO)
  Receive Date: 20240610
  Receipt Date: 20240726
  Transmission Date: 20241016
  Serious: Yes (Hospitalization)
  Sender: BIOGEN
  Company Number: CO-BIOGEN-2024BI01268504

PATIENT
  Age: 2 Year
  Sex: Female
  Weight: 7.8 kg

DRUGS (1)
  1. SPINRAZA [Suspect]
     Active Substance: NUSINERSEN
     Indication: Spinal muscular atrophy
     Route: 050

REACTIONS (2)
  - Respiratory tract infection viral [Recovered/Resolved]
  - Breast milk substitute intolerance [Unknown]

NARRATIVE: CASE EVENT DATE: 20240201
